FAERS Safety Report 8205485-0 (Version None)
Quarter: 2012Q1

REPORT INFORMATION
  Report Type: 
  Country: None (occurrence: None)
  Receive Date: 20120309
  Receipt Date: 20120221
  Transmission Date: 20120608
  Serious: Yes (Hospitalization)
  Sender: FDA-Public Use
  Company Number: FR-REGULIS-0032

PATIENT
  Age: 46 Year
  Sex: Male

DRUGS (4)
  1. ORBENINE / CLOXACILLIN SODIUM MONOHYDRATE [Concomitant]
  2. ARANSEP / DARBEPOETIN ALFA [Concomitant]
  3. CALCIDIA / CALCIUM CARBONATE [Concomitant]
  4. FOSCAVIR [Suspect]
     Indication: CYTOMEGALOVIRUS INFECTION
     Dosage: 6, G GRAM9S), 2, 1, DAYS
     Dates: start: 20111027

REACTIONS (7)
  - RENAL IMPAIRMENT [None]
  - PROTEINURIA [None]
  - CHEMICAL INJURY [None]
  - RENAL TUBULAR DISORDER [None]
  - SCROTAL ULCER [None]
  - HAEMATURIA [None]
  - TOXICITY TO VARIOUS AGENTS [None]
